FAERS Safety Report 18683377 (Version 2)
Quarter: 2021Q1

REPORT INFORMATION
  Report Type: Spontaneous
  Country: LT (occurrence: LT)
  Receive Date: 20201230
  Receipt Date: 20210113
  Transmission Date: 20210419
  Serious: Yes (Life-Threatening, Hospitalization)
  Sender: FDA-Public Use
  Company Number: LT-TEVA-2020-LT-1863332

PATIENT
  Age: 41 Year
  Sex: Female
  Weight: 90 kg

DRUGS (3)
  1. ZONSILOC [Suspect]
     Active Substance: BISOPROLOL FUMARATE
     Indication: SUICIDE ATTEMPT
     Dosage: 10TAB
     Route: 048
     Dates: start: 20201130, end: 20201130
  2. METOPROLOL ? TABLET [Suspect]
     Active Substance: METOPROLOL
     Indication: SUICIDE ATTEMPT
     Dosage: 10 TAB
     Route: 048
     Dates: start: 20201130, end: 20201130
  3. KVENTIAX [Suspect]
     Active Substance: QUETIAPINE FUMARATE
     Indication: SUICIDE ATTEMPT
     Dosage: 10 TAB
     Route: 048
     Dates: start: 20201130, end: 20201130

REACTIONS (3)
  - Off label use [Recovering/Resolving]
  - Suicide attempt [Recovering/Resolving]
  - Hypotension [Recovering/Resolving]

NARRATIVE: CASE EVENT DATE: 20201130
